FAERS Safety Report 5129255-5 (Version None)
Quarter: 2006Q4

REPORT INFORMATION
  Report Type: 
  Country: None (occurrence: None)
  Receive Date: 20061011
  Receipt Date: 20060928
  Transmission Date: 20070319
  Serious: Yes (Hospitalization)
  Sender: FDA-Public Use
  Company Number: TCI2006A00757

PATIENT
  Age: 73 Year
  Sex: Female

DRUGS (2)
  1. ACTOS [Suspect]
     Indication: DIABETES MELLITUS
     Dosage: 15 MG 915 MG, 1 IN 1 D) PER ORAL
     Route: 048
     Dates: start: 20051020
  2. BASEN (VOGLIBOSE) [Concomitant]

REACTIONS (2)
  - PERSECUTORY DELUSION [None]
  - SCHIZOPHRENIA [None]
